FAERS Safety Report 7798245-6 (Version None)
Quarter: 2011Q4

REPORT INFORMATION
  Report Type: 
  Country: None (occurrence: None)
  Receive Date: 20111005
  Receipt Date: 20110923
  Transmission Date: 20120403
  Serious: Yes (Hospitalization, Other)
  Sender: FDA-Public Use
  Company Number: US-JNJFOC-20110704985

PATIENT
  Sex: Female
  Weight: 34.02 kg

DRUGS (1)
  1. CONCERTA [Suspect]
     Indication: ATTENTION DEFICIT/HYPERACTIVITY DISORDER
     Route: 048
     Dates: start: 20110501, end: 20110501

REACTIONS (13)
  - ABNORMAL BEHAVIOUR [None]
  - LETHARGY [None]
  - CONSTIPATION [None]
  - HOSPITALISATION [None]
  - CHEST PAIN [None]
  - PALPITATIONS [None]
  - SUICIDE ATTEMPT [None]
  - AGITATION [None]
  - ABDOMINAL PAIN [None]
  - PAIN [None]
  - ANXIETY [None]
  - LOSS OF CONSCIOUSNESS [None]
  - DYSPNOEA [None]
